FAERS Safety Report 17553025 (Version 2)
Quarter: 2020Q3

REPORT INFORMATION
  Report Type: Report from Study
  Country: None (occurrence: JP)
  Receive Date: 20200317
  Receipt Date: 20200728
  Transmission Date: 20201102
  Serious: Yes (Other)
  Sender: FDA-Public Use
  Company Number: JP-BAUSCH-BL-2020-008000

PATIENT
  Age: 69 Year
  Sex: Female
  Weight: 44.5 kg

DRUGS (51)
  1. FLUOROURACIL. [Suspect]
     Active Substance: FLUOROURACIL
     Dosage: ONCE
     Route: 040
     Dates: start: 20190314, end: 20190314
  2. FLUOROURACIL. [Suspect]
     Active Substance: FLUOROURACIL
     Dosage: ONCE
     Route: 041
     Dates: start: 20190107, end: 20190107
  3. FLUOROURACIL. [Suspect]
     Active Substance: FLUOROURACIL
     Dosage: ONCE
     Route: 041
     Dates: start: 20190124, end: 20190124
  4. ZALTRAP [Suspect]
     Active Substance: ZIV-AFLIBERCEPT
     Route: 041
     Dates: start: 20191218, end: 20191218
  5. IRINOTECAN [Suspect]
     Active Substance: IRINOTECAN
     Route: 065
     Dates: start: 20190107, end: 20190107
  6. IRINOTECAN [Suspect]
     Active Substance: IRINOTECAN
     Dosage: EVERY 3 WEEKS
     Route: 065
     Dates: start: 20191218, end: 20200129
  7. FLUOROURACIL. [Suspect]
     Active Substance: FLUOROURACIL
     Dosage: ONCE
     Route: 040
     Dates: start: 20190107, end: 20190107
  8. FLUOROURACIL. [Suspect]
     Active Substance: FLUOROURACIL
     Dosage: EVERY 3 WEEKS, DURATION: 2 MONTHS 3 DAYS
     Route: 041
     Dates: start: 20190619, end: 20190821
  9. FLUOROURACIL. [Suspect]
     Active Substance: FLUOROURACIL
     Dosage: EVERY 3 WEEKS
     Route: 041
     Dates: start: 20191002, end: 20191023
  10. ZALTRAP [Suspect]
     Active Substance: ZIV-AFLIBERCEPT
     Indication: COLON CANCER
     Route: 041
     Dates: start: 20190214, end: 20190214
  11. ZALTRAP [Suspect]
     Active Substance: ZIV-AFLIBERCEPT
     Route: 041
     Dates: start: 20181221, end: 20181221
  12. IRINOTECAN [Suspect]
     Active Substance: IRINOTECAN
     Route: 065
     Dates: start: 20190124, end: 20190124
  13. IRINOTECAN [Suspect]
     Active Substance: IRINOTECAN
     Route: 065
     Dates: start: 20190424, end: 20190424
  14. IRINOTECAN [Suspect]
     Active Substance: IRINOTECAN
     Route: 065
     Dates: start: 20190530, end: 20190530
  15. LEUCOVORIN CA [Concomitant]
     Active Substance: LEUCOVORIN CALCIUM
     Indication: COLON CANCER
     Dates: start: 20181221, end: 20181221
  16. HOCHUEKKITO [Concomitant]
     Active Substance: HERBALS
     Indication: DECREASED APPETITE
  17. FLUOROURACIL. [Suspect]
     Active Substance: FLUOROURACIL
     Indication: COLON CANCER
     Dosage: ONCE
     Route: 040
     Dates: start: 20190214, end: 20190214
  18. FLUOROURACIL. [Suspect]
     Active Substance: FLUOROURACIL
     Dosage: ONCE
     Route: 041
     Dates: start: 20190314, end: 20190314
  19. ZALTRAP [Suspect]
     Active Substance: ZIV-AFLIBERCEPT
     Route: 041
     Dates: start: 20190509, end: 20190509
  20. ZALTRAP [Suspect]
     Active Substance: ZIV-AFLIBERCEPT
     Route: 041
     Dates: start: 20200129, end: 20200129
  21. FLUOROURACIL. [Suspect]
     Active Substance: FLUOROURACIL
     Dosage: ONCE
     Route: 040
     Dates: start: 20181221, end: 20181221
  22. ZALTRAP [Suspect]
     Active Substance: ZIV-AFLIBERCEPT
     Route: 041
     Dates: start: 20190410, end: 20190410
  23. ZALTRAP [Suspect]
     Active Substance: ZIV-AFLIBERCEPT
     Route: 041
     Dates: start: 20190821, end: 20190821
  24. ZALTRAP [Suspect]
     Active Substance: ZIV-AFLIBERCEPT
     Dosage: EVERY 3 WEEKS
     Route: 041
     Dates: start: 20191002, end: 20191023
  25. IRINOTECAN [Suspect]
     Active Substance: IRINOTECAN
     Route: 065
     Dates: start: 201811, end: 201812
  26. FLUOROURACIL. [Suspect]
     Active Substance: FLUOROURACIL
     Indication: COLON CANCER
     Route: 065
     Dates: start: 201811, end: 201812
  27. FLUOROURACIL. [Suspect]
     Active Substance: FLUOROURACIL
     Dosage: ONCE
     Route: 041
     Dates: start: 20190214, end: 20190214
  28. ZALTRAP [Suspect]
     Active Substance: ZIV-AFLIBERCEPT
     Route: 041
     Dates: start: 20190731, end: 20190731
  29. ZALTRAP [Suspect]
     Active Substance: ZIV-AFLIBERCEPT
     Route: 041
     Dates: start: 20190912, end: 20190912
  30. IRINOTECAN [Suspect]
     Active Substance: IRINOTECAN
     Route: 065
     Dates: start: 20181221, end: 20181221
  31. IRINOTECAN [Suspect]
     Active Substance: IRINOTECAN
     Route: 065
     Dates: start: 20190314, end: 20190314
  32. IRINOTECAN [Suspect]
     Active Substance: IRINOTECAN
     Route: 065
     Dates: start: 20190912, end: 20190912
  33. IRINOTECAN [Suspect]
     Active Substance: IRINOTECAN
     Dosage: EVERY OTHER WEEK
     Route: 065
     Dates: start: 20191113, end: 20191127
  34. FLUOROURACIL. [Suspect]
     Active Substance: FLUOROURACIL
     Dosage: ONCE
     Route: 040
     Dates: start: 20190124, end: 20190124
  35. FLUOROURACIL. [Suspect]
     Active Substance: FLUOROURACIL
     Dosage: ONCE
     Route: 041
     Dates: start: 20190410, end: 20190410
  36. FLUOROURACIL. [Suspect]
     Active Substance: FLUOROURACIL
     Dosage: ONCE
     Route: 041
     Dates: start: 20190424, end: 20190424
  37. FLUOROURACIL. [Suspect]
     Active Substance: FLUOROURACIL
     Dosage: ONCE
     Route: 041
     Dates: start: 20190912, end: 20190912
  38. ZALTRAP [Suspect]
     Active Substance: ZIV-AFLIBERCEPT
     Route: 041
     Dates: start: 20190424, end: 20190424
  39. FLUOROURACIL. [Suspect]
     Active Substance: FLUOROURACIL
     Dosage: ONCE
     Route: 041
     Dates: start: 20190530, end: 20190530
  40. FLUOROURACIL. [Suspect]
     Active Substance: FLUOROURACIL
     Dosage: EVERY OTHER WEEK
     Route: 041
     Dates: start: 20191113, end: 20191127
  41. FLUOROURACIL. [Suspect]
     Active Substance: FLUOROURACIL
     Dosage: EVERY 3 WEEKS
     Route: 041
     Dates: start: 20191218, end: 20200129
  42. IRINOTECAN [Suspect]
     Active Substance: IRINOTECAN
     Indication: COLON CANCER
     Route: 065
     Dates: start: 20190214, end: 20190214
  43. IRINOTECAN [Suspect]
     Active Substance: IRINOTECAN
     Route: 065
     Dates: start: 20190509, end: 20190509
  44. IRINOTECAN [Suspect]
     Active Substance: IRINOTECAN
     Dosage: EVERY 3 WEEKS, DURATION:2 MONTHS 3 DAYS
     Route: 065
     Dates: start: 20190619, end: 20190821
  45. IRINOTECAN [Suspect]
     Active Substance: IRINOTECAN
     Dosage: EVERY 3 WEEKS
     Route: 065
     Dates: start: 20191002, end: 20191023
  46. HOCHUEKKITO [Concomitant]
     Active Substance: HERBALS
     Indication: FATIGUE
     Dates: start: 20190107
  47. FLUOROURACIL. [Suspect]
     Active Substance: FLUOROURACIL
     Dosage: ONCE
     Route: 041
     Dates: start: 20181221, end: 20181221
  48. ZALTRAP [Suspect]
     Active Substance: ZIV-AFLIBERCEPT
     Route: 041
     Dates: start: 20190107, end: 20190107
  49. ZALTRAP [Suspect]
     Active Substance: ZIV-AFLIBERCEPT
     Route: 041
     Dates: start: 20190124, end: 20190124
  50. ZALTRAP [Suspect]
     Active Substance: ZIV-AFLIBERCEPT
     Route: 041
     Dates: start: 20190314, end: 20190314
  51. IRINOTECAN [Suspect]
     Active Substance: IRINOTECAN
     Route: 065
     Dates: start: 20190410, end: 20190410

REACTIONS (1)
  - Neutropenia [Recovered/Resolved]

NARRATIVE: CASE EVENT DATE: 20190306
